FAERS Safety Report 8139470-4 (Version None)
Quarter: 2012Q1

REPORT INFORMATION
  Report Type: 
  Country: None (occurrence: None)
  Receive Date: 20120215
  Receipt Date: 20120202
  Transmission Date: 20120608
  Serious: Yes (Hospitalization)
  Sender: FDA-Public Use
  Company Number: JP-ROCHE-773007

PATIENT
  Sex: Female
  Weight: 43.7 kg

DRUGS (25)
  1. ACTEMRA [Suspect]
     Route: 041
     Dates: start: 20090224, end: 20090224
  2. ACTEMRA [Suspect]
     Route: 041
     Dates: start: 20090324, end: 20090324
  3. ACTEMRA [Suspect]
     Route: 041
     Dates: start: 20091014, end: 20091014
  4. ACTEMRA [Suspect]
     Indication: RHEUMATOID ARTHRITIS
     Route: 041
     Dates: start: 20080730, end: 20080730
  5. ACTEMRA [Suspect]
     Route: 041
     Dates: start: 20090715, end: 20090715
  6. ACTEMRA [Suspect]
     Route: 041
     Dates: start: 20090824, end: 20090824
  7. ACTEMRA [Suspect]
     Route: 041
     Dates: start: 20091116, end: 20091116
  8. ACTEMRA [Suspect]
     Dosage: DISCONTINUED.
     Route: 041
     Dates: start: 20100409, end: 20100409
  9. ACTEMRA [Suspect]
     Route: 041
     Dates: start: 20090421, end: 20090421
  10. ACTEMRA [Suspect]
     Route: 041
     Dates: start: 20090519, end: 20090519
  11. ACTEMRA [Suspect]
     Route: 041
     Dates: start: 20100609, end: 20100609
  12. ACTEMRA [Suspect]
     Route: 041
     Dates: start: 20080827, end: 20080827
  13. ACTEMRA [Suspect]
     Route: 041
     Dates: start: 20081224, end: 20081224
  14. ACTEMRA [Suspect]
     Route: 041
     Dates: start: 20090916, end: 20090916
  15. ACTEMRA [Suspect]
     Route: 041
     Dates: start: 20091214, end: 20091214
  16. ALLEGRA [Concomitant]
     Route: 048
  17. ACTEMRA [Suspect]
     Route: 041
     Dates: start: 20090619, end: 20090619
  18. ACTEMRA [Suspect]
     Route: 041
     Dates: start: 20100215, end: 20100215
  19. ACTEMRA [Suspect]
     Route: 041
     Dates: start: 20100312, end: 20100312
  20. ACTEMRA [Suspect]
     Route: 041
     Dates: start: 20080924, end: 20080924
  21. ACTEMRA [Suspect]
     Route: 041
     Dates: start: 20081021, end: 20081021
  22. ACTEMRA [Suspect]
     Route: 041
     Dates: start: 20090127, end: 20090127
  23. ACTEMRA [Suspect]
     Route: 041
     Dates: start: 20100118, end: 20100118
  24. ACTEMRA [Suspect]
     Dosage: LAST DOSE : 16 JUL 2010
     Route: 041
     Dates: start: 20100716, end: 20110223
  25. ACTEMRA [Suspect]
     Route: 041
     Dates: start: 20081125, end: 20081125

REACTIONS (3)
  - CELLULITIS [None]
  - FEMORAL NECK FRACTURE [None]
  - RASH [None]
